FAERS Safety Report 9216498 (Version 2)
Quarter: 2013Q2

REPORT INFORMATION
  Report Type: Spontaneous
  Country: US (occurrence: None)
  Receive Date: 20130402
  Receipt Date: 20130419
  Transmission Date: 20140414
  Serious: Yes (Other)
  Sender: FDA-Public Use
  Company Number: ZYD-13-AE-083

PATIENT
  Age: 53 Year
  Sex: Male

DRUGS (6)
  1. MELOXICAM [Suspect]
     Indication: OSTEOARTHRITIS
     Route: 048
     Dates: start: 20130128, end: 20130319
  2. TRAMADOL 50MG [Concomitant]
  3. TRAMADOL XR 200MG [Concomitant]
  4. TYLENOL 500MG [Concomitant]
  5. SIMVASTATIN 20MG [Concomitant]
  6. ALLEGRA [Concomitant]

REACTIONS (1)
  - Neutropenia [None]
